FAERS Safety Report 5353511-9 (Version None)
Quarter: 2007Q2

REPORT INFORMATION
  Report Type: 
  Country: None (occurrence: None)
  Receive Date: 20070612
  Receipt Date: 20070601
  Transmission Date: 20071010
  Serious: Yes (Other)
  Sender: FDA-Public Use
  Company Number: BR-JNJFOC-20070600971

PATIENT
  Age: 5 Month
  Sex: Male
  Weight: 8 kg

DRUGS (3)
  1. DAKTARIN [Suspect]
     Route: 048
  2. DAKTARIN [Suspect]
     Indication: ORAL CANDIDIASIS
     Route: 048
  3. NYSTATIN [Concomitant]
     Indication: CANDIDIASIS
     Route: 061

REACTIONS (3)
  - DYSPHONIA [None]
  - DYSPNOEA [None]
  - MEDICATION ERROR [None]
